FAERS Safety Report 11745250 (Version 1)
Quarter: 2015Q4

REPORT INFORMATION
  Report Type: Spontaneous
  Country: US (occurrence: US)
  Receive Date: 20151117
  Receipt Date: 20151117
  Transmission Date: 20160304
  Serious: No
  Sender: FDA-Public Use
  Company Number: US-LUPIN PHARMACEUTICALS INC.-2015-02927

PATIENT
  Sex: Female
  Weight: 123.94 kg

DRUGS (1)
  1. DULOXETINE DELAYED-RELEASE 30 MG CAPSULES USP [Suspect]
     Active Substance: DULOXETINE
     Indication: SPINAL COLUMN STENOSIS
     Route: 048
     Dates: start: 20150902

REACTIONS (2)
  - Pain [Unknown]
  - Drug ineffective [Unknown]
